FAERS Safety Report 15508631 (Version 5)
Quarter: 2019Q1

REPORT INFORMATION
  Report Type: Spontaneous
  Country: US (occurrence: US)
  Receive Date: 20181016
  Receipt Date: 20190321
  Transmission Date: 20190417
  Serious: Yes (Hospitalization)
  Sender: FDA-Public Use
  Company Number: US-ACTELION-A-US2018-180088

PATIENT
  Age: 40 Year
  Sex: Female
  Weight: 74.83 kg

DRUGS (5)
  1. ADCIRCA [Concomitant]
     Active Substance: TADALAFIL
  2. VELETRI [Suspect]
     Active Substance: EPOPROSTENOL
     Indication: PULMONARY ARTERIAL HYPERTENSION
     Dosage: 20 NG/KG, PER MIN
     Route: 042
  3. VELETRI [Suspect]
     Active Substance: EPOPROSTENOL
     Dosage: 10 NG/KG, PER MIN
     Route: 042
  4. LETAIRIS [Concomitant]
     Active Substance: AMBRISENTAN
  5. INFLUENZA VACCINE [Concomitant]
     Active Substance: INFLUENZA VIRUS VACCINE
     Dosage: UNK
     Dates: start: 20181009

REACTIONS (9)
  - Headache [Unknown]
  - Feeling hot [Unknown]
  - Oedema peripheral [Unknown]
  - Product deposit [Recovered/Resolved]
  - Catheter management [Unknown]
  - Tachycardia [Unknown]
  - Pyrexia [Unknown]
  - Infection [Unknown]
  - Dizziness [Unknown]

NARRATIVE: CASE EVENT DATE: 20181010
